FAERS Safety Report 20139707 (Version 1)
Quarter: 2021Q4

REPORT INFORMATION
  Report Type: Spontaneous
  Country: US (occurrence: None)
  Receive Date: 20211201
  Receipt Date: 20211201
  Transmission Date: 20220303
  Serious: Yes (Other)
  Sender: FDA-Public Use
  Company Number: None

PATIENT
  Age: 33 Year
  Sex: Male
  Weight: 116.1 kg

DRUGS (4)
  1. CASIRIVIMAB\IMDEVIMAB [Suspect]
     Active Substance: CASIRIVIMAB\IMDEVIMAB
     Indication: COVID-19
     Dosage: OTHER FREQUENCY : ONCE;?
     Route: 041
     Dates: start: 20211122, end: 20211122
  2. ALPRAZOLAM [Concomitant]
     Active Substance: ALPRAZOLAM
     Dates: start: 20211118
  3. FAMOTIDINE [Concomitant]
     Active Substance: FAMOTIDINE
     Dates: start: 20211124
  4. pantoprazol DR [Concomitant]
     Dates: start: 20210430

REACTIONS (14)
  - Diarrhoea [None]
  - Leukopenia [None]
  - Cholelithiasis [None]
  - Hepatitis [None]
  - Pancreatitis [None]
  - Gastritis [None]
  - Pneumonia viral [None]
  - Hepatic steatosis [None]
  - Abdominal pain upper [None]
  - Abdominal tenderness [None]
  - Blood pressure increased [None]
  - Chest pain [None]
  - Nausea [None]
  - Vomiting [None]

NARRATIVE: CASE EVENT DATE: 20211124
